FAERS Safety Report 8555325-5 (Version None)
Quarter: 2012Q3

REPORT INFORMATION
  Report Type: 
  Country: None (occurrence: None)
  Receive Date: 20120731
  Receipt Date: 20110831
  Transmission Date: 20120928
  Serious: No
  Sender: FDA-Public Use
  Company Number: US-ASTRAZENECA-2011SE41886

PATIENT
  Age: 19271 Day
  Sex: Male
  Weight: 90.7 kg

DRUGS (4)
  1. SEROQUEL XR [Suspect]
     Route: 048
     Dates: start: 20110625, end: 20110701
  2. PROZAC [Concomitant]
     Indication: DEPRESSION
  3. PROZAC [Concomitant]
     Indication: OBSESSIVE-COMPULSIVE DISORDER
  4. SEROQUEL XR [Suspect]
     Indication: DEPRESSION
     Route: 048

REACTIONS (4)
  - DELUSIONAL PERCEPTION [None]
  - DISORIENTATION [None]
  - DISTURBANCE IN ATTENTION [None]
  - CONFUSIONAL STATE [None]
